FAERS Safety Report 16372890 (Version 1)
Quarter: 2019Q2

REPORT INFORMATION
  Report Type: Spontaneous
  Country: US (occurrence: US)
  Receive Date: 20190424
  Receipt Date: 20190424
  Transmission Date: 20190711
  Serious: No
  Sender: FDA-Public Use
  Company Number: None

PATIENT

DRUGS (1)
  1. NEXIUM GENERIC [Suspect]
     Active Substance: ESOMEPRAZOLE
     Indication: DYSPEPSIA
     Dosage: ?          QUANTITY:40 MG MILLIGRAM(S);?
     Route: 048
     Dates: start: 2018, end: 20190405

REACTIONS (1)
  - Product substitution issue [None]
